FAERS Safety Report 18276944 (Version 1)
Quarter: 2020Q3

REPORT INFORMATION
  Report Type: Spontaneous
  Country: US (occurrence: US)
  Receive Date: 20200917
  Receipt Date: 20200917
  Transmission Date: 20201103
  Serious: No
  Sender: FDA-Public Use
  Company Number: US-BAYER-2020-192893

PATIENT
  Age: 56 Year
  Sex: Female
  Weight: 82.09 kg

DRUGS (4)
  1. ALEVE [Suspect]
     Active Substance: NAPROXEN SODIUM
     Indication: NEURALGIA
     Dosage: UNK
  2. TYLENOL [Concomitant]
     Active Substance: ACETAMINOPHEN
     Indication: NEURALGIA
  3. METHOTREXATE. [Concomitant]
     Active Substance: METHOTREXATE
  4. HUMIRA [Concomitant]
     Active Substance: ADALIMUMAB
     Indication: RHEUMATOID ARTHRITIS
     Dosage: UNK
     Route: 058

REACTIONS (4)
  - Weight decreased [Unknown]
  - Musculoskeletal stiffness [Unknown]
  - Hepatic enzyme increased [Recovering/Resolving]
  - Depression [Unknown]

NARRATIVE: CASE EVENT DATE: 202006
